FAERS Safety Report 16057976 (Version 1)
Quarter: 2019Q1

REPORT INFORMATION
  Report Type: Spontaneous
  Country: AT (occurrence: AT)
  Receive Date: 20190311
  Receipt Date: 20190311
  Transmission Date: 20190418
  Serious: Yes (Other)
  Sender: FDA-Public Use
  Company Number: AT-ELI_LILLY_AND_COMPANY-AT201903001937

PATIENT
  Age: 40 Year
  Sex: Male

DRUGS (1)
  1. TALTZ [Suspect]
     Active Substance: IXEKIZUMAB
     Indication: PSORIASIS
     Dosage: 80 MG, MONTHLY (1/M)
     Route: 058
     Dates: start: 201809

REACTIONS (2)
  - Candida infection [Unknown]
  - Oral pustule [Unknown]

NARRATIVE: CASE EVENT DATE: 201902
